FAERS Safety Report 23249136 (Version 3)
Quarter: 2023Q4

REPORT INFORMATION
  Report Type: Report from Study
  Country: CH (occurrence: CH)
  Receive Date: 20231201
  Receipt Date: 20231225
  Transmission Date: 20240109
  Serious: Yes (Death)
  Sender: FDA-Public Use
  Company Number: CH-ABBVIE-5520623

PATIENT
  Age: 76 Year
  Sex: Male
  Weight: 50 kg

DRUGS (5)
  1. CARBIDOPA\LEVODOPA [Suspect]
     Active Substance: CARBIDOPA\LEVODOPA
     Indication: Parkinson^s disease
     Dosage: MD: 2.5 ML, CRD: 3.6 ML/H, CRN: 2.6 ML/H, ED: 2.5 ML
     Route: 050
     Dates: start: 20231004, end: 20231012
  2. CARBIDOPA\LEVODOPA [Suspect]
     Active Substance: CARBIDOPA\LEVODOPA
     Dosage: MD: 2.5 ML, CRD: 3.6 ML/H, CRN: 2.0 ML/H, ED: 1.8ML
     Route: 050
     Dates: start: 20231127, end: 20231129
  3. CARBIDOPA\LEVODOPA [Suspect]
     Active Substance: CARBIDOPA\LEVODOPA
     Route: 050
     Dates: start: 20170208
  4. CARBIDOPA\LEVODOPA [Suspect]
     Active Substance: CARBIDOPA\LEVODOPA
     Dosage: MD: 2.5 ML, CRD: 4.5 ML/H, CRN: 0 ML/H, ED: 2.5 ML
     Route: 050
     Dates: start: 20230720, end: 20231004
  5. CARBIDOPA\LEVODOPA [Suspect]
     Active Substance: CARBIDOPA\LEVODOPA
     Dosage: MD: 2.5 ML, CRD: 3.6 ML/H, CRN: 2.2 ML/H, ED: 1.8ML
     Route: 050
     Dates: start: 20231012, end: 20231127

REACTIONS (1)
  - Death [Fatal]

NARRATIVE: CASE EVENT DATE: 20231129
